FAERS Safety Report 9758347 (Version 5)
Quarter: 2014Q1

REPORT INFORMATION
  Report Type: Spontaneous
  Country: US (occurrence: US)
  Receive Date: 20131216
  Receipt Date: 20140129
  Transmission Date: 20141002
  Serious: Yes (Other)
  Sender: FDA-Public Use
  Company Number: US-DRREDDYS-USA/USA/13/0034767

PATIENT
  Age: 29 Year
  Sex: Female

DRUGS (1)
  1. ZENATANE [Suspect]
     Indication: PRODUCT USED FOR UNKNOWN INDICATION
     Route: 065
     Dates: start: 20130624, end: 20130827

REACTIONS (2)
  - Exposure during pregnancy [Unknown]
  - Abortion induced [Unknown]
